FAERS Safety Report 20129193 (Version 2)
Quarter: 2022Q1

REPORT INFORMATION
  Report Type: Other
  Country: US (occurrence: None)
  Receive Date: 20211130
  Receipt Date: 20220124
  Transmission Date: 20220424
  Serious: Yes (Other)
  Sender: FDA-Public Use
  Company Number: US-ROCHE-2962114

PATIENT
  Sex: Male

DRUGS (2)
  1. OCREVUS [Suspect]
     Active Substance: OCRELIZUMAB
     Indication: Relapsing multiple sclerosis
     Route: 065
     Dates: start: 20200501
  2. VALIUM [Suspect]
     Active Substance: DIAZEPAM
     Indication: Product used for unknown indication
     Dosage: AT NIGHT
     Route: 065

REACTIONS (4)
  - Urinary tract infection pseudomonal [Unknown]
  - Trigeminal neuralgia [Recovered/Resolved]
  - Protein total decreased [Unknown]
  - Albumin globulin ratio increased [Unknown]
